FAERS Safety Report 9508484 (Version 1)
Quarter: 2013Q1

REPORT INFORMATION
  Report Type: Spontaneous
  Country: US (occurrence: None)
  Receive Date: 20130305
  Receipt Date: 20130305
  Transmission Date: 20140127
  Serious: Yes (Other)
  Sender: FDA-Public Use
  Company Number: 163-21880-12112206

PATIENT
  Age: 59 Year
  Sex: Female
  Weight: 63.5 kg

DRUGS (10)
  1. REVLIMID [Suspect]
     Indication: PLASMA CELL MYELOMA
     Dosage: CAPSULE, 10 MG, 21 IN 21 D, PO
     Dates: start: 20120901
  2. PROTONIX [Concomitant]
  3. ACYCLOVIR (ACICLOVIR) [Concomitant]
  4. ASA (ACETYLSALICYLIC ACID) [Concomitant]
  5. CALCIUM CITRATE [Concomitant]
  6. ESSENTIAL MEGA (MEBUTAMATE) [Concomitant]
  7. FISH OIL OMEGA [Concomitant]
  8. LAMICTAL (LAMOTRIGINE) [Concomitant]
  9. NEURONTIN (GABAPENTIN) [Concomitant]
  10. SUPER B COMPLEX (BECOSYM FORTE) [Concomitant]

REACTIONS (3)
  - Flatulence [None]
  - Eructation [None]
  - Vomiting [None]
